FAERS Safety Report 14373951 (Version 1)
Quarter: 2018Q1

REPORT INFORMATION
  Report Type: Spontaneous
  Country: PK (occurrence: PK)
  Receive Date: 20180111
  Receipt Date: 20180111
  Transmission Date: 20180509
  Serious: Yes (Death, Other)
  Sender: FDA-Public Use
  Company Number: PK-ROCHE-2050033

PATIENT
  Age: 50 Year
  Sex: Male

DRUGS (1)
  1. BEVACIZUMAB. [Suspect]
     Active Substance: BEVACIZUMAB
     Indication: GLIOBLASTOMA
     Route: 051
     Dates: start: 20171029

REACTIONS (3)
  - Cardiac failure [Fatal]
  - Cerebral haemorrhage [Fatal]
  - Amnesia [Unknown]

NARRATIVE: CASE EVENT DATE: 20171215
